FAERS Safety Report 9184920 (Version 1)
Quarter: 2013Q1

REPORT INFORMATION
  Report Type: Spontaneous
  Country: US (occurrence: US)
  Receive Date: 20130325
  Receipt Date: 20130325
  Transmission Date: 20140127
  Serious: No
  Sender: FDA-Public Use
  Company Number: US-BRISTOL-MYERS SQUIBB COMPANY-16530578

PATIENT
  Age: 51 Year
  Sex: Female
  Weight: 58.96 kg

DRUGS (1)
  1. ERBITUX [Suspect]
     Dosage: LAST DOSE ON:17-APR-2012.NO OF COOURSE-2.
     Dates: start: 20120404

REACTIONS (4)
  - Skin tightness [Unknown]
  - Pruritus [Unknown]
  - Dermatitis acneiform [Unknown]
  - Skin disorder [Unknown]
